FAERS Safety Report 5941320-9 (Version None)
Quarter: 2008Q4

REPORT INFORMATION
  Report Type: 
  Country: None (occurrence: None)
  Receive Date: 20081103
  Receipt Date: 20081103
  Transmission Date: 20090506
  Serious: Yes (Other)
  Sender: FDA-Public Use
  Company Number: None

PATIENT
  Age: 64 Year
  Sex: Male
  Weight: 83.9154 kg

DRUGS (2)
  1. AMOXICILLIN [Suspect]
     Indication: OTITIS MEDIA
     Dosage: ONE TABLET 3 TIMES A DAY PO
     Route: 048
     Dates: start: 20081028, end: 20081102
  2. NEOMYCIN SULFATE, POLYMYXIN B SULFATE + HYDROCORTISONE [Suspect]
     Indication: OTITIS EXTERNA
     Dosage: 4 DROPS 4 TIMES A DAY OTHER
     Route: 050
     Dates: start: 20081028, end: 20081101

REACTIONS (4)
  - ABDOMINAL PAIN [None]
  - CHILLS [None]
  - DIARRHOEA [None]
  - TRANSMISSION OF AN INFECTIOUS AGENT VIA A MEDICINAL PRODUCT [None]
